FAERS Safety Report 10763495 (Version 6)
Quarter: 2015Q3

REPORT INFORMATION
  Report Type: Report from Study
  Country: US (occurrence: US)
  Receive Date: 20150204
  Receipt Date: 20150813
  Transmission Date: 20151125
  Serious: Yes (Hospitalization, Other)
  Sender: FDA-Public Use
  Company Number: US-BAYER-2015-007162

PATIENT
  Age: 75 Year
  Sex: Male
  Weight: 129.71 kg

DRUGS (6)
  1. ADEMPAS [Suspect]
     Active Substance: RIOCIGUAT
     Indication: PULMONARY ARTERIAL HYPERTENSION
     Dosage: 6 MG, QD (1 TABLET TID)
     Route: 048
  2. TYVASO [Concomitant]
     Active Substance: TREPROSTINIL
  3. ADEMPAS [Suspect]
     Active Substance: RIOCIGUAT
     Indication: PULMONARY ARTERIAL HYPERTENSION
     Dosage: 1 MG, TID
     Route: 048
     Dates: start: 20141230
  4. ADEMPAS [Suspect]
     Active Substance: RIOCIGUAT
     Indication: PULMONARY ARTERIAL HYPERTENSION
     Dosage: 1.5 MG, TID
     Route: 048
  5. ADEMPAS [Suspect]
     Active Substance: RIOCIGUAT
     Indication: PULMONARY ARTERIAL HYPERTENSION
     Dosage: 0.5 MG, TID
     Route: 048
  6. ADEMPAS [Suspect]
     Active Substance: RIOCIGUAT
     Indication: PULMONARY ARTERIAL HYPERTENSION
     Dosage: 1 MG, TID
     Route: 048

REACTIONS (19)
  - Pleural effusion [None]
  - Dizziness [Unknown]
  - Blood pressure systolic increased [Unknown]
  - Ear infection [Unknown]
  - Abnormal weight gain [None]
  - Peripheral swelling [None]
  - Right ventricular failure [None]
  - Epistaxis [Unknown]
  - Feeling abnormal [Unknown]
  - Fall [Unknown]
  - Nasal dryness [Unknown]
  - Nasal congestion [Unknown]
  - Renal failure [None]
  - Bradycardia [Unknown]
  - Weight decreased [Unknown]
  - Insomnia [Unknown]
  - Rhinitis [Unknown]
  - Sluggishness [Unknown]
  - Oedema [None]

NARRATIVE: CASE EVENT DATE: 2015
